FAERS Safety Report 16386736 (Version 1)
Quarter: 2019Q2

REPORT INFORMATION
  Report Type: Spontaneous
  Country: CA (occurrence: CA)
  Receive Date: 20190604
  Receipt Date: 20190604
  Transmission Date: 20190711
  Serious: Yes (Hospitalization, Other)
  Sender: FDA-Public Use
  Company Number: CA-AUROBINDO-AUR-APL-2019-029952

PATIENT

DRUGS (8)
  1. ENTACAPONE TABLET [Suspect]
     Active Substance: ENTACAPONE
     Indication: PARKINSONISM
     Dosage: 1000 MILLIGRAM, ONCE A DAY
     Route: 065
  2. NABILONE [Suspect]
     Active Substance: NABILONE
     Indication: PRODUCT USED FOR UNKNOWN INDICATION
     Dosage: 2.0 DOSAGE FORM
     Route: 048
  3. AMANTADINE. [Suspect]
     Active Substance: AMANTADINE HYDROCHLORIDE
     Indication: PARKINSONISM
     Dosage: 300.0 MILLIGRAM, ONCE A DAY
     Route: 065
  4. PRAMIPEXOLE. [Suspect]
     Active Substance: PRAMIPEXOLE
     Indication: PARKINSONISM
     Dosage: 1.5 MILLIGRAM, ONCE A DAY
     Route: 065
  5. PRAMIPEXOLE. [Suspect]
     Active Substance: PRAMIPEXOLE
     Dosage: 0.75 MILLIGRAM, ONCE A DAY
     Route: 065
  6. CARBIDOPA;LEVODOPA [Suspect]
     Active Substance: CARBIDOPA\LEVODOPA
     Indication: PARKINSONISM
     Dosage: 1.0 DOSAGE FORM, ONCE A DAY
     Route: 065
  7. PRAMIPEXOLE. [Suspect]
     Active Substance: PRAMIPEXOLE
     Dosage: 4.5 MILLIGRAM, ONCE A DAY
     Route: 065
  8. QUETIAPINE. [Concomitant]
     Active Substance: QUETIAPINE
     Indication: PRODUCT USED FOR UNKNOWN INDICATION
     Dosage: UNK
     Route: 065

REACTIONS (5)
  - Acute psychosis [Recovering/Resolving]
  - Dyskinesia [Recovering/Resolving]
  - Psychotic disorder [Recovering/Resolving]
  - Dystonia [Recovering/Resolving]
  - Therapeutic response shortened [Recovering/Resolving]
